FAERS Safety Report 12743025 (Version 1)
Quarter: 2016Q3

REPORT INFORMATION
  Report Type: Spontaneous
  Country: US (occurrence: US)
  Receive Date: 20160914
  Receipt Date: 20160914
  Transmission Date: 20161109
  Serious: No
  Sender: FDA-Public Use
  Company Number: US-SIGMA-TAU US-2016STPI000176

PATIENT
  Age: 17 Year
  Sex: Female

DRUGS (4)
  1. MATULANE [Suspect]
     Active Substance: PROCARBAZINE HYDROCHLORIDE
     Indication: BRAIN NEOPLASM MALIGNANT
     Dosage: 100 MG, Q6H X 2
     Route: 048
     Dates: start: 20150908
  2. LOMUSTINE. [Concomitant]
     Active Substance: LOMUSTINE
     Dosage: 100 MG, UNK
  3. TABLOID [Concomitant]
     Active Substance: THIOGUANINE
     Dosage: 40 MG, UNK
  4. MATULANE [Suspect]
     Active Substance: PROCARBAZINE HYDROCHLORIDE
     Dosage: 50 MG, Q6H
     Route: 048
     Dates: start: 20150908

REACTIONS (1)
  - Nausea [Not Recovered/Not Resolved]

NARRATIVE: CASE EVENT DATE: 20160203
